FAERS Safety Report 7708648-3 (Version None)
Quarter: 2011Q3

REPORT INFORMATION
  Report Type: 
  Country: None (occurrence: None)
  Receive Date: 20110825
  Receipt Date: 20110817
  Transmission Date: 20111222
  Serious: Yes (Hospitalization, Other)
  Sender: FDA-Public Use
  Company Number: US-BAYER-2011-017273

PATIENT
  Age: 18 Year
  Sex: Female
  Weight: 71.202 kg

DRUGS (12)
  1. YASMIN [Suspect]
     Indication: ACNE
     Dosage: UNK
     Dates: start: 20030101, end: 20090101
  2. YASMIN [Suspect]
     Indication: PREMENSTRUAL SYNDROME
  3. LUPRON [Concomitant]
     Dosage: UNK
     Dates: start: 20070425
  4. YAZ [Suspect]
     Indication: CONTRACEPTION
  5. LUPRON [Concomitant]
     Dosage: UNK
     Dates: start: 20071002
  6. YAZ [Suspect]
     Indication: MENSTRUATION IRREGULAR
  7. YASMIN [Suspect]
     Indication: CONTRACEPTION
  8. YAZ [Suspect]
     Indication: PREMENSTRUAL SYNDROME
  9. SPIRONOLACTONE [Concomitant]
     Dosage: UNK
     Dates: start: 20010101, end: 20100101
  10. LUPRON [Concomitant]
     Dosage: UNK
     Dates: start: 20080226
  11. YAZ [Suspect]
     Indication: ACNE
     Dosage: UNK
     Dates: start: 20030101, end: 20090101
  12. YASMIN [Suspect]
     Indication: MENSTRUATION IRREGULAR

REACTIONS (4)
  - PAIN [None]
  - ARRHYTHMIA [None]
  - INJURY [None]
  - THROMBOSIS [None]
